FAERS Safety Report 5278993-2 (Version None)
Quarter: 2007Q1

REPORT INFORMATION
  Report Type: 
  Country: None (occurrence: None)
  Receive Date: 20070328
  Receipt Date: 20061013
  Transmission Date: 20070707
  Serious: No
  Sender: FDA-Public Use
  Company Number: US-AMGEN-US196799

PATIENT
  Sex: Female

DRUGS (2)
  1. NEUPOGEN [Suspect]
     Indication: AGRANULOCYTOSIS
     Route: 065
  2. NEULASTA [Suspect]
     Indication: AGRANULOCYTOSIS
     Route: 065

REACTIONS (1)
  - INFECTION [None]
